FAERS Safety Report 10190937 (Version 1)
Quarter: 2014Q2

REPORT INFORMATION
  Report Type: Spontaneous
  Country: US (occurrence: US)
  Receive Date: 20140523
  Receipt Date: 20140523
  Transmission Date: 20141212
  Serious: No
  Sender: FDA-Public Use
  Company Number: US-GLAXOSMITHKLINE-A1045246A

PATIENT
  Age: 73 Year
  Sex: Female

DRUGS (1)
  1. TOPOTECAN [Suspect]
     Indication: METASTASES TO OVARY
     Dosage: 5MG WEEKLY
     Route: 042
     Dates: start: 20131009

REACTIONS (1)
  - Drug administration error [Unknown]
